FAERS Safety Report 19736492 (Version 5)
Quarter: 2022Q1

REPORT INFORMATION
  Report Type: Report from Study
  Country: KR (occurrence: KR)
  Receive Date: 20210823
  Receipt Date: 20220112
  Transmission Date: 20220423
  Serious: Yes (Hospitalization, Other)
  Sender: FDA-Public Use
  Company Number: KR-TAKEDA-2021TUS051552

PATIENT
  Age: 30 Year
  Sex: Male
  Weight: 62.2 kg

DRUGS (37)
  1. VEDOLIZUMAB [Suspect]
     Active Substance: VEDOLIZUMAB
     Indication: Colitis ulcerative
     Dosage: 300 MILLIGRAM
     Route: 042
     Dates: start: 20210510, end: 20210727
  2. VEDOLIZUMAB [Suspect]
     Active Substance: VEDOLIZUMAB
     Dosage: 300 MILLIGRAM
     Route: 042
  3. NORZYME [Concomitant]
     Indication: Adverse event
     Dosage: UNK UNK, TID
     Route: 048
     Dates: start: 20210715, end: 20210730
  4. NORZYME [Concomitant]
     Dosage: UNK UNK, TID
     Route: 048
     Dates: start: 20210804, end: 20210805
  5. NORZYME [Concomitant]
     Dosage: UNK UNK, BID
     Route: 048
     Dates: start: 20210806, end: 20210807
  6. PROBIOTICS NOS [Concomitant]
     Active Substance: PROBIOTICS NOS
     Indication: Adverse event
     Dosage: UNK UNK, BID
     Route: 048
     Dates: start: 20210715, end: 20210730
  7. PROBIOTICS NOS [Concomitant]
     Active Substance: PROBIOTICS NOS
     Dosage: UNK UNK, BID
     Route: 048
     Dates: start: 20210804, end: 20210806
  8. Mypol [Concomitant]
     Indication: Adverse event
     Dosage: UNK
     Route: 048
     Dates: start: 20210715, end: 20210730
  9. ZALTOPROFEN [Concomitant]
     Active Substance: ZALTOPROFEN
     Indication: Adverse event
     Dosage: 80 MILLIGRAM, BID
     Route: 048
     Dates: start: 20210804, end: 20210805
  10. ZALTOPROFEN [Concomitant]
     Active Substance: ZALTOPROFEN
     Dosage: 80 MILLIGRAM
     Route: 048
     Dates: start: 20210806, end: 20210831
  11. MOVELOXIN [Concomitant]
     Indication: Adverse event
     Dosage: 400 MILLIGRAM, QD
     Route: 048
     Dates: start: 20210805, end: 20210812
  12. ACETAMINOPHEN [Concomitant]
     Active Substance: ACETAMINOPHEN
     Indication: Adverse event
     Dosage: 650 MILLIGRAM, TID
     Route: 048
     Dates: start: 20210804, end: 20210805
  13. ACETAMINOPHEN [Concomitant]
     Active Substance: ACETAMINOPHEN
     Dosage: 650 MILLIGRAM, BID
     Route: 048
     Dates: start: 20210806, end: 20210807
  14. NEXIUM [Concomitant]
     Active Substance: ESOMEPRAZOLE MAGNESIUM
     Indication: Adverse event
     Dosage: 425 MILLIGRAM, QD
     Route: 042
     Dates: start: 20210731, end: 20210803
  15. NEXIUM [Concomitant]
     Active Substance: ESOMEPRAZOLE MAGNESIUM
     Dosage: 20 MILLIGRAM, QD
     Route: 048
     Dates: start: 20210807, end: 20210811
  16. HERBALS [Concomitant]
     Active Substance: HERBALS
     Indication: Adverse event
     Dosage: UNK UNK, BID
     Route: 048
     Dates: start: 20210804, end: 20210805
  17. HERBALS [Concomitant]
     Active Substance: HERBALS
     Dosage: UNK UNK, TID
     Route: 048
     Dates: start: 20210806, end: 20210902
  18. RAMOSETRON HYDROCHLORIDE [Concomitant]
     Active Substance: RAMOSETRON HYDROCHLORIDE
     Indication: Adverse event
     Dosage: 0.3 MILLIGRAM, QD
     Route: 042
     Dates: start: 20210803, end: 20210803
  19. DEXKETOPROFEN TROMETAMOL [Concomitant]
     Active Substance: DEXKETOPROFEN TROMETAMOL
     Indication: Adverse event
     Dosage: UNK UNK, TID
     Route: 042
     Dates: start: 20210803, end: 20210803
  20. FREEFOL MCT [Concomitant]
     Indication: Adverse event
     Dosage: 150 MILLIGRAM, QD
     Route: 042
     Dates: start: 20210803, end: 20210803
  21. BRIDION [Concomitant]
     Active Substance: SUGAMMADEX
     Indication: Adverse event
     Dosage: UNK UNK, QD
     Route: 042
     Dates: start: 20210803, end: 20210803
  22. ROCURONIUM BROMIDE [Concomitant]
     Active Substance: ROCURONIUM BROMIDE
     Dosage: UNK UNK, QD
     Route: 042
     Dates: start: 20210803, end: 20210803
  23. EPHEDRINE [Concomitant]
     Active Substance: EPHEDRINE
     Indication: Adverse event
     Dosage: UNK UNK, QD
     Route: 058
     Dates: start: 20210803, end: 20210803
  24. ULTIVA [Concomitant]
     Active Substance: REMIFENTANIL HYDROCHLORIDE
     Indication: Adverse event
     Dosage: UNK UNK, QD
     Route: 042
     Dates: start: 20210803, end: 20210803
  25. FENTANYL [Concomitant]
     Active Substance: FENTANYL
     Indication: Adverse event
     Dosage: UNK UNK, BID
     Route: 042
     Dates: start: 20210803, end: 20210803
  26. NADOXOL [Concomitant]
     Indication: Adverse event
     Dosage: 15 MILLIGRAM, QD
     Route: 031
     Dates: start: 20210803, end: 20210803
  27. MORPHINE HYDROCHLORIDE [Concomitant]
     Active Substance: MORPHINE HYDROCHLORIDE
     Indication: Adverse event
     Dosage: 5 MILLIGRAM, QD
     Route: 042
     Dates: start: 20210731, end: 20210731
  28. HUMAN SERUMALBUMIN [Concomitant]
     Indication: Adverse event
     Dosage: 100 MILLIGRAM, QD
     Route: 042
     Dates: start: 20210805, end: 20210805
  29. CEFOTAXIME SODIUM [Concomitant]
     Active Substance: CEFOTAXIME SODIUM
     Indication: Adverse event
     Dosage: 2 GRAM, BID
     Route: 042
     Dates: start: 20210731, end: 20210801
  30. CEFTIZOXIME SODIUM [Concomitant]
     Active Substance: CEFTIZOXIME SODIUM
     Indication: Adverse event
     Dosage: 1 GRAM, QID
     Route: 042
     Dates: start: 20210731, end: 20210801
  31. PETHIDIN HCL [Concomitant]
     Indication: Adverse event
     Dosage: 25 MILLIGRAM
     Route: 042
     Dates: start: 20210731, end: 20210804
  32. ACETPHEN PREMIX [Concomitant]
     Indication: Adverse event
     Dosage: 1000 MILLIGRAM, BID
     Route: 042
     Dates: start: 20210731, end: 20210731
  33. ACETPHEN PREMIX [Concomitant]
     Dosage: 1000 MILLIGRAM, QD
     Route: 042
     Dates: start: 20210801, end: 20210803
  34. TRAMADOL HYDROCHLORIDE [Concomitant]
     Active Substance: TRAMADOL HYDROCHLORIDE
     Indication: Adverse event
     Dosage: 50 MILLIGRAM, TID
     Route: 042
     Dates: start: 20210731, end: 20210803
  35. PIPERACILLIN SODIUM\TAZOBACTAM SODIUM [Concomitant]
     Active Substance: PIPERACILLIN SODIUM\TAZOBACTAM SODIUM
     Indication: Adverse event
     Dosage: UNK UNK, QID
     Route: 042
     Dates: start: 20210801, end: 20210804
  36. METOCLOPRAMIDE HYDROCHLORIDE [Concomitant]
     Active Substance: METOCLOPRAMIDE HYDROCHLORIDE
     Indication: Adverse event
     Dosage: 10 MILLIGRAM, TID
     Route: 042
     Dates: start: 20210803, end: 20210805
  37. FOTAGEL [Concomitant]
     Indication: Diarrhoea
     Dosage: 20 MILLILITER, PRN
     Route: 048
     Dates: start: 20210316, end: 20210707

REACTIONS (1)
  - Cholecystitis [Recovered/Resolved]

NARRATIVE: CASE EVENT DATE: 20210729
